FAERS Safety Report 13457782 (Version 10)
Quarter: 2018Q1

REPORT INFORMATION
  Report Type: Report from Study
  Country: RS (occurrence: RS)
  Receive Date: 20170419
  Receipt Date: 20180102
  Transmission Date: 20180508
  Serious: Yes (Life-Threatening, Hospitalization)
  Sender: FDA-Public Use
  Company Number: RS-BIOGEN-2017BI00383952

PATIENT
  Age: 35 Year
  Sex: Male
  Weight: 74 kg

DRUGS (7)
  1. ASPIRIN C [Concomitant]
     Dosage: 400/240 MG
     Route: 048
     Dates: start: 20170318, end: 20170325
  2. BRUFEN [Concomitant]
     Active Substance: IBUPROFEN
     Indication: PYREXIA
     Route: 048
     Dates: start: 20170326, end: 20170410
  3. PARACETAMOL [Concomitant]
     Active Substance: ACETAMINOPHEN
     Indication: PYREXIA
     Route: 048
     Dates: start: 20170311, end: 20170311
  4. DOXYCYCLINE. [Concomitant]
     Active Substance: DOXYCYCLINE
     Indication: PYREXIA
     Route: 048
     Dates: start: 20170318, end: 20170325
  5. PARACETAMOL [Concomitant]
     Active Substance: ACETAMINOPHEN
     Route: 048
     Dates: start: 20170318, end: 20170325
  6. DACLIZUMAB HYP [Suspect]
     Active Substance: DACLIZUMAB
     Indication: MULTIPLE SCLEROSIS
     Route: 058
     Dates: start: 20140314, end: 20170309
  7. ASPIRIN C [Concomitant]
     Indication: PYREXIA
     Route: 065
     Dates: start: 20170311

REACTIONS (4)
  - Liver injury [Recovered/Resolved]
  - Granulocytopenia [Recovered/Resolved]
  - Pancytopenia [Recovered/Resolved]
  - Agranulocytosis [Recovered/Resolved]

NARRATIVE: CASE EVENT DATE: 20170403
